FAERS Safety Report 9109943 (Version 4)
Quarter: 2013Q4

REPORT INFORMATION
  Report Type: Spontaneous
  Country: IT (occurrence: IT)
  Receive Date: 20130222
  Receipt Date: 20131213
  Transmission Date: 20140711
  Serious: Yes (Death)
  Sender: FDA-Public Use
  Company Number: IT-BRISTOL-MYERS SQUIBB COMPANY-17385295

PATIENT
  Age: 35 Year
  Sex: Male

DRUGS (4)
  1. ERBITUX SOLN FOR INF [Suspect]
     Indication: COLON CANCER STAGE IV
     Route: 042
     Dates: start: 20130201, end: 20130201
  2. FOLINIC ACID [Concomitant]
     Indication: COLON CANCER STAGE IV
     Dosage: INFUSION
     Route: 042
     Dates: start: 20130201, end: 20130202
  3. FLUOROURACIL [Concomitant]
     Indication: COLON CANCER STAGE IV
     Dosage: INFUSION
     Route: 040
     Dates: start: 20130201, end: 20130202
  4. OXALIPLATIN [Concomitant]
     Indication: COLON CANCER STAGE IV
     Dosage: INFUSION.TEVA
     Route: 042
     Dates: start: 20130201, end: 20130201

REACTIONS (1)
  - Febrile neutropenia [Fatal]
